FAERS Safety Report 10215051 (Version 1)
Quarter: 2014Q2

REPORT INFORMATION
  Report Type: Spontaneous
  Country: US (occurrence: US)
  Receive Date: 20140603
  Receipt Date: 20140603
  Transmission Date: 20141212
  Serious: Yes (Other)
  Sender: FDA-Public Use
  Company Number: US-MYLANLABS-2014S1012518

PATIENT
  Age: 62 Year
  Sex: Male

DRUGS (13)
  1. TRAMADOL [Suspect]
     Indication: PAIN
     Route: 048
  2. BUPROPION [Interacting]
     Indication: DEPRESSION
     Route: 048
  3. TRAZODONE [Suspect]
     Indication: INSOMNIA
     Dosage: AT BEDTIME; AS REQUIRED
     Route: 048
  4. OXYCODONE [Suspect]
     Indication: PAIN
     Dosage: 5-10MG EVERY 4 HOURS
     Route: 048
  5. HEPARIN [Concomitant]
     Route: 030
  6. RANITIDINE [Concomitant]
     Route: 048
  7. DOCUSATE CALCIUM [Concomitant]
     Route: 048
  8. PARACETAMOL [Concomitant]
     Indication: PAIN
     Route: 048
  9. POLYETHYLENE GLYCOL [Concomitant]
     Indication: CONSTIPATION
     Dosage: 17G DISSOLVED IN 4OZ WATER EVERY 4H, AS NEEDED, PEG 3350
     Route: 048
  10. CALCIUM [Concomitant]
     Dosage: 250MG DAILY
     Route: 048
  11. VITAMIN D [Concomitant]
     Dosage: 125 UNITS DAILY
     Route: 048
  12. THIAMINE [Concomitant]
     Dosage: 100MG DAILY
     Route: 048
  13. FOLIC ACID [Concomitant]
     Dosage: 1MG DAILY
     Route: 048

REACTIONS (2)
  - Serotonin syndrome [Recovered/Resolved]
  - Drug interaction [Recovered/Resolved]
